FAERS Safety Report 20542526 (Version 2)
Quarter: 2022Q2

REPORT INFORMATION
  Report Type: Report from Study
  Country: US (occurrence: US)
  Receive Date: 20220302
  Receipt Date: 20220617
  Transmission Date: 20220721
  Serious: Yes (Hospitalization, Other)
  Sender: FDA-Public Use
  Company Number: US-UCBSA-2021052822

PATIENT
  Sex: Male

DRUGS (1)
  1. CERTOLIZUMAB PEGOL [Suspect]
     Active Substance: CERTOLIZUMAB PEGOL
     Indication: Ankylosing spondylitis
     Dosage: 400 MILLIGRAM, EV 4 WEEKS
     Dates: start: 20211102

REACTIONS (11)
  - Heart rate decreased [Not Recovered/Not Resolved]
  - Blood pressure decreased [Not Recovered/Not Resolved]
  - Loss of consciousness [Not Recovered/Not Resolved]
  - Arthralgia [Not Recovered/Not Resolved]
  - Back pain [Not Recovered/Not Resolved]
  - Neck pain [Not Recovered/Not Resolved]
  - Spinal fusion acquired [Not Recovered/Not Resolved]
  - Sciatica [Not Recovered/Not Resolved]
  - Product use issue [Unknown]
  - Therapeutic product effect variable [Unknown]
  - Therapeutic response shortened [Unknown]

NARRATIVE: CASE EVENT DATE: 20210101
